FAERS Safety Report 23123838 (Version 1)
Quarter: 2023Q4

REPORT INFORMATION
  Report Type: Spontaneous
  Country: US (occurrence: US)
  Receive Date: 20231030
  Receipt Date: 20231030
  Transmission Date: 20240110
  Serious: Yes (Other)
  Sender: FDA-Public Use
  Company Number: US-002147023-NVSC2023US228236

PATIENT
  Age: 28 Year
  Sex: Female
  Weight: 87.09 kg

DRUGS (1)
  1. COSENTYX [Suspect]
     Active Substance: SECUKINUMAB
     Indication: Psoriasis
     Dosage: 2 MG/KG, QMO
     Route: 065
     Dates: start: 20220725, end: 20230819

REACTIONS (2)
  - Heavy menstrual bleeding [Recovering/Resolving]
  - Oligomenorrhoea [Recovering/Resolving]

NARRATIVE: CASE EVENT DATE: 20220725
